FAERS Safety Report 23989767 (Version 2)
Quarter: 2024Q3

REPORT INFORMATION
  Report Type: Report from Study
  Country: US (occurrence: US)
  Receive Date: 20240619
  Receipt Date: 20240705
  Transmission Date: 20241017
  Serious: Yes (Hospitalization)
  Sender: TEVA
  Company Number: US-TEVA-VS-3209447

PATIENT
  Age: 70 Year

DRUGS (2)
  1. CAPECITABINE [Suspect]
     Active Substance: CAPECITABINE
     Indication: Pancreatic carcinoma
     Route: 065
  2. WARFARIN [Concomitant]
     Active Substance: WARFARIN
     Indication: Anticoagulant therapy
     Route: 065

REACTIONS (1)
  - Gastrointestinal haemorrhage [Unknown]
